FAERS Safety Report 12873322 (Version 2)
Quarter: 2016Q4

REPORT INFORMATION
  Report Type: Spontaneous
  Country: JP (occurrence: JP)
  Receive Date: 20161021
  Receipt Date: 20161102
  Transmission Date: 20170207
  Serious: Yes (Other)
  Sender: FDA-Public Use
  Company Number: JP-GILEAD-2016-0238125AA

PATIENT
  Age: 72 Year
  Sex: Female

DRUGS (19)
  1. CEPHARANTHIN [Concomitant]
  2. ALITHIA [Concomitant]
  3. TATHION [Concomitant]
     Active Substance: GLUTATHIONE
  4. ALFACALCIDOL [Concomitant]
     Active Substance: ALFACALCIDOL
  5. FOSAMAC [Concomitant]
     Active Substance: ALENDRONATE SODIUM
  6. GLYCYRON                           /00467202/ [Concomitant]
  7. HARVONI [Suspect]
     Active Substance: LEDIPASVIR\SOFOSBUVIR
     Indication: CHRONIC HEPATITIS C
     Dosage: UNK
     Route: 048
     Dates: start: 20160404, end: 20160525
  8. AZULENE [Concomitant]
     Active Substance: AZULENE
  9. VITAMIN K [Concomitant]
     Active Substance: PHYTONADIONE
  10. MECOBALAMIN [Concomitant]
     Active Substance: METHYLCOBALAMIN
  11. LEMIGEN [Concomitant]
  12. BISULASE                           /00154901/ [Concomitant]
  13. DAIVITAMIX [Concomitant]
  14. PROTPORT [Concomitant]
  15. ASCORBIC [Concomitant]
  16. EPERISONE                          /01071502/ [Concomitant]
  17. URSO [Concomitant]
     Active Substance: URSODIOL
  18. MAALOX ANTACID [Concomitant]
     Active Substance: ALUMINUM HYDROXIDE\DIMETHICONE\MAGNESIUM HYDROXIDE
  19. CABAGIN                            /00246401/ [Concomitant]

REACTIONS (3)
  - Adenocarcinoma [Unknown]
  - Pleural effusion [Not Recovered/Not Resolved]
  - Malignant pleural effusion [Unknown]

NARRATIVE: CASE EVENT DATE: 20160521
